FAERS Safety Report 6725396-7 (Version None)
Quarter: 2010Q2

REPORT INFORMATION
  Report Type: 
  Country: None (occurrence: None)
  Receive Date: 20100514
  Receipt Date: 20100514
  Transmission Date: 20101027
  Serious: Yes (Other)
  Sender: FDA-Public Use
  Company Number: None

PATIENT
  Age: 2 Month
  Sex: Male
  Weight: 5.67 kg

DRUGS (2)
  1. INFANT TYLENOL ? ? [Suspect]
     Indication: PAIN
     Dosage: 10MG/KG 4 DOSES PO
     Route: 048
     Dates: start: 20100118, end: 20100118
  2. INFANT TYLENOL CONCENTRATED 80MG TYLENOL [Suspect]
     Indication: PAIN
     Dosage: 80MG ONE TIME PO
     Route: 048
     Dates: start: 20100317, end: 20100317

REACTIONS (4)
  - FEELING ABNORMAL [None]
  - JAUNDICE [None]
  - PYREXIA [None]
  - TREMOR [None]
